FAERS Safety Report 6765132-1 (Version None)
Quarter: 2010Q2

REPORT INFORMATION
  Report Type: 
  Country: None (occurrence: None)
  Receive Date: 20100609
  Receipt Date: 20100609
  Transmission Date: 20101027
  Serious: Yes (Other)
  Sender: FDA-Public Use
  Company Number: None

PATIENT
  Sex: Female
  Weight: 61.2356 kg

DRUGS (3)
  1. FLUOXETINE [Suspect]
     Indication: DEPRESSION
     Dosage: 40 MG ONCE A DAY ORALLY
     Route: 048
     Dates: start: 20100405
  2. LAMOTRIGINE [Concomitant]
  3. BUPROPION HCL [Concomitant]

REACTIONS (2)
  - HALLUCINATION, AUDITORY [None]
  - MOOD ALTERED [None]
